FAERS Safety Report 7861987-8 (Version None)
Quarter: 2011Q4

REPORT INFORMATION
  Report Type: 
  Country: None (occurrence: None)
  Receive Date: 20111027
  Receipt Date: 20101122
  Transmission Date: 20120403
  Serious: No
  Sender: FDA-Public Use
  Company Number: US-AMGEN-USASP2010006148

PATIENT
  Sex: Female

DRUGS (4)
  1. ENBREL [Suspect]
     Indication: PSORIATIC ARTHROPATHY
     Dates: start: 20101026
  2. ENBREL [Suspect]
     Indication: ANKYLOSING SPONDYLITIS
  3. NAPROSYN [Concomitant]
  4. TYLENOL-500 [Concomitant]

REACTIONS (1)
  - TONSILLAR DISORDER [None]
